FAERS Safety Report 20574513 (Version 2)
Quarter: 2022Q1

REPORT INFORMATION
  Report Type: Report from Study
  Country: HU (occurrence: HU)
  Receive Date: 20220309
  Receipt Date: 20220315
  Transmission Date: 20220423
  Serious: Yes (Hospitalization)
  Sender: FDA-Public Use
  Company Number: HU-AstraZeneca-2022A100225

PATIENT
  Age: 0 Year
  Sex: Female

DRUGS (1)
  1. SYNAGIS [Suspect]
     Active Substance: PALIVIZUMAB
     Indication: Antiviral prophylaxis
     Dosage: BY BODY WEIGHT PER MONTH
     Route: 030
     Dates: start: 20211108

REACTIONS (1)
  - Medical device site inflammation [Not Recovered/Not Resolved]

NARRATIVE: CASE EVENT DATE: 20220221
